FAERS Safety Report 5621101-6 (Version None)
Quarter: 2008Q1

REPORT INFORMATION
  Report Type: 
  Country: None (occurrence: None)
  Receive Date: 20080114
  Receipt Date: 20070105
  Transmission Date: 20080703
  Serious: Yes (Hospitalization)
  Sender: FDA-Public Use
  Company Number: A03200700231

PATIENT
  Age: 52 Year
  Sex: Female

DRUGS (3)
  1. CLOPIDOGREL [Suspect]
     Indication: MYOCARDIAL INFARCTION
     Dosage: 75 MG QD-ORAL
     Route: 048
     Dates: start: 20031014
  2. CLOPIDOGREL [Suspect]
     Indication: STENT PLACEMENT
     Dosage: 75 MG QD-ORAL
     Route: 048
     Dates: start: 20031014
  3. ASPIRIN [Suspect]
     Indication: MYOCARDIAL INFARCTION
     Dosage: 81 MG QD-ORAL
     Route: 048
     Dates: start: 20031014

REACTIONS (3)
  - ACUTE MYOCARDIAL INFARCTION [None]
  - ARTERIAL RESTENOSIS [None]
  - CHEST PAIN [None]
